FAERS Safety Report 7196514-4 (Version None)
Quarter: 2010Q4

REPORT INFORMATION
  Report Type: 
  Country: None (occurrence: None)
  Receive Date: 20101223
  Receipt Date: 20101026
  Transmission Date: 20110411
  Serious: No
  Sender: FDA-Public Use
  Company Number: US-AMGEN-USASP2010002548

PATIENT

DRUGS (2)
  1. ENBREL [Suspect]
     Indication: PSORIASIS
     Dosage: 50 MG, QWK
     Dates: start: 20050101, end: 20050101
  2. ENBREL [Suspect]
     Dosage: 50 MG, QWK
     Dates: start: 20061101, end: 20080201

REACTIONS (4)
  - DISCOMFORT [None]
  - NODULE [None]
  - PREGNANCY [None]
  - PSORIASIS [None]
